FAERS Safety Report 13608223 (Version 1)
Quarter: 2017Q2

REPORT INFORMATION
  Report Type: Spontaneous
  Country: FR (occurrence: FR)
  Receive Date: 20170602
  Receipt Date: 20170602
  Transmission Date: 20170830
  Serious: Yes (Hospitalization, Other)
  Sender: FDA-Public Use
  Company Number: FR-ABBVIE-17K-056-1994257-00

PATIENT
  Age: 33 Year
  Sex: Male

DRUGS (8)
  1. ALFATIL [Concomitant]
     Active Substance: CEFACLOR
     Indication: RESPIRATORY TRACT INFECTION
     Route: 048
     Dates: start: 201704
  2. HUMIRA [Suspect]
     Active Substance: ADALIMUMAB
     Route: 058
     Dates: start: 201609
  3. PARIET [Concomitant]
     Active Substance: RABEPRAZOLE SODIUM
     Indication: PRODUCT USED FOR UNKNOWN INDICATION
  4. HUMIRA [Suspect]
     Active Substance: ADALIMUMAB
     Indication: ENTEROCOLITIS HAEMORRHAGIC
     Route: 058
     Dates: start: 201607, end: 2016
  5. PYOSTACINE [Concomitant]
     Active Substance: PRISTINAMYCIN
     Indication: RESPIRATORY TRACT INFECTION
     Route: 048
     Dates: start: 201704
  6. AMOXICILLIN. [Concomitant]
     Active Substance: AMOXICILLIN
     Indication: TONSILLITIS
     Dates: start: 201704
  7. PARIET [Concomitant]
     Active Substance: RABEPRAZOLE SODIUM
     Dates: start: 201703
  8. GAVISCON [Concomitant]
     Active Substance: ALUMINUM HYDROXIDE\MAGNESIUM CARBONATE
     Indication: PRODUCT USED FOR UNKNOWN INDICATION

REACTIONS (6)
  - Hepatic function abnormal [Recovered/Resolved]
  - Frequent bowel movements [Unknown]
  - Drug-induced liver injury [Recovered/Resolved]
  - Epiglottic oedema [Not Recovered/Not Resolved]
  - Epiglottitis [Not Recovered/Not Resolved]
  - Hepatocellular injury [Recovering/Resolving]

NARRATIVE: CASE EVENT DATE: 201609
